FAERS Safety Report 14359562 (Version 1)
Quarter: 2018Q1

REPORT INFORMATION
  Report Type: Spontaneous
  Country: US (occurrence: US)
  Receive Date: 20180105
  Receipt Date: 20180105
  Transmission Date: 20180509
  Serious: No
  Sender: FDA-Public Use
  Company Number: -SAAVPROD-BI2017BI003827

PATIENT
  Age: 72 Year
  Sex: Male

DRUGS (1)
  1. RANITIDINE HYDROCHLORIDE. [Suspect]
     Active Substance: RANITIDINE HYDROCHLORIDE
     Indication: ERUCTATION
     Dosage: 1PILL EVERY 12 HOURS; FORMULATION: TABLET; STRENGTH: 75 MG; ADMINISTRATION CORRECT; ACTION TAKEN: DO
     Route: 048
     Dates: start: 20170120

REACTIONS (4)
  - Off label use [Unknown]
  - Abdominal pain [Unknown]
  - Product taste abnormal [Unknown]
  - Dizziness [Recovered/Resolved]

NARRATIVE: CASE EVENT DATE: 20170120
